FAERS Safety Report 18221846 (Version 1)
Quarter: 2020Q3

REPORT INFORMATION
  Report Type: Spontaneous
  Country: DE (occurrence: DE)
  Receive Date: 20200902
  Receipt Date: 20200902
  Transmission Date: 20201103
  Serious: Yes (Hospitalization, Other)
  Sender: FDA-Public Use
  Company Number: DE-PFIZER INC-2020336914

PATIENT
  Sex: Male

DRUGS (10)
  1. MABTHERA [Suspect]
     Active Substance: RITUXIMAB
     Dosage: 1000 UNK
     Route: 065
     Dates: start: 201701
  2. METHOTREXATE SODIUM. [Suspect]
     Active Substance: METHOTREXATE SODIUM
     Dosage: 10 UNK
     Route: 065
  3. ROACTEMRA [Concomitant]
     Active Substance: TOCILIZUMAB
     Dosage: 162 MG
     Route: 065
     Dates: start: 201711, end: 201712
  4. METHOTREXATE SODIUM. [Suspect]
     Active Substance: METHOTREXATE SODIUM
     Dosage: 10 MG, WEEKLY
     Route: 065
  5. RIXATHON [Suspect]
     Active Substance: RITUXIMAB
     Dosage: 1000 UNK
     Route: 065
     Dates: start: 201808
  6. RIXATHON [Suspect]
     Active Substance: RITUXIMAB
     Dosage: 1000 UNK
     Route: 065
     Dates: start: 201904
  7. METHOTREXATE SODIUM. [Suspect]
     Active Substance: METHOTREXATE SODIUM
     Dosage: 25 UNK
     Route: 065
  8. RIXATHON [Suspect]
     Active Substance: RITUXIMAB
     Dosage: 1000 UNK
     Route: 065
     Dates: start: 201801
  9. RIXATHON [Suspect]
     Active Substance: RITUXIMAB
     Dosage: 1000 MG
     Route: 042
     Dates: start: 20190401
  10. MABTHERA [Suspect]
     Active Substance: RITUXIMAB
     Dosage: 1000 MG
     Route: 065
     Dates: start: 201601

REACTIONS (4)
  - Giant cell arteritis [Unknown]
  - Visual impairment [Unknown]
  - Osteoarthritis [Not Recovered/Not Resolved]
  - Multifocal motor neuropathy [Unknown]

NARRATIVE: CASE EVENT DATE: 20190911
